FAERS Safety Report 9031540 (Version 2)
Quarter: 2013Q1

REPORT INFORMATION
  Report Type: Spontaneous
  Country: JP (occurrence: JP)
  Receive Date: 20130124
  Receipt Date: 20130211
  Transmission Date: 20140127
  Serious: Yes (Hospitalization, Other)
  Sender: FDA-Public Use
  Company Number: JP-009507513-1301JPN010281

PATIENT
  Age: 69 Year
  Sex: Female

DRUGS (8)
  1. PEGINTRON [Suspect]
     Indication: CHRONIC HEPATITIS C
     Dosage: 1.5 MICROGRAM PER KILOGRAM, DAILY DOSE UNKNOWN
     Route: 058
     Dates: start: 20121015, end: 20130102
  2. PEGINTRON [Suspect]
     Dosage: UNK
     Route: 058
     Dates: start: 20130119
  3. REBETOL [Suspect]
     Indication: CHRONIC HEPATITIS C
     Dosage: 400 MG, QD
     Route: 048
     Dates: start: 20121015, end: 20130102
  4. REBETOL [Suspect]
     Dosage: 400 MG, QD
     Route: 048
     Dates: start: 20130119
  5. TELAVIC [Suspect]
     Indication: CHRONIC HEPATITIS C
     Dosage: 2250 MG, QD
     Route: 048
     Dates: start: 20121015, end: 20121022
  6. TELAVIC [Suspect]
     Dosage: 2250 MG, QD
     Route: 048
     Dates: start: 20121029, end: 20121105
  7. TELAVIC [Suspect]
     Dosage: 1500 MG, QD
     Route: 048
     Dates: start: 20121114
  8. NEO-MINOPHAGEN C [Concomitant]
     Indication: CHRONIC HEPATITIS C
     Dosage: 1 DF, QD
     Route: 042

REACTIONS (4)
  - Pneumonia [Recovered/Resolved]
  - Enterocolitis [Recovered/Resolved]
  - Drug eruption [Recovering/Resolving]
  - Drug eruption [Recovering/Resolving]
